FAERS Safety Report 20581362 (Version 1)
Quarter: 2022Q1

REPORT INFORMATION
  Report Type: Spontaneous
  Country: DE (occurrence: DE)
  Receive Date: 20220311
  Receipt Date: 20220311
  Transmission Date: 20220423
  Serious: Yes (Other)
  Sender: FDA-Public Use
  Company Number: DE-Accord-254391

PATIENT
  Age: 30 Year
  Sex: Female

DRUGS (1)
  1. VORICONAZOLE [Suspect]
     Active Substance: VORICONAZOLE
     Indication: Product used for unknown indication
     Dosage: UNK
     Route: 065

REACTIONS (6)
  - Synovitis [Recovered/Resolved]
  - Periostitis [Recovered/Resolved]
  - Polyarthritis [Recovered/Resolved]
  - Enthesopathy [Recovered/Resolved]
  - Blood alkaline phosphatase increased [Recovered/Resolved]
  - Fluoride increased [Recovered/Resolved]
